FAERS Safety Report 6804980-6 (Version None)
Quarter: 2010Q2

REPORT INFORMATION
  Report Type: 
  Country: None (occurrence: None)
  Receive Date: 20100628
  Receipt Date: 20070726
  Transmission Date: 20101027
  Serious: No
  Sender: FDA-Public Use
  Company Number: US-PFIZER INC-2007062360

PATIENT
  Sex: Female
  Weight: 56.7 kg

DRUGS (3)
  1. XALATAN [Suspect]
     Indication: OCULAR HYPERTENSION
  2. ALTACE [Concomitant]
  3. OPHTHALMOLOGICALS [Concomitant]

REACTIONS (1)
  - PALPITATIONS [None]
